FAERS Safety Report 9669607 (Version 3)
Quarter: 2013Q4

REPORT INFORMATION
  Report Type: Spontaneous
  Country: ES (occurrence: ES)
  Receive Date: 20131105
  Receipt Date: 20131212
  Transmission Date: 20140711
  Serious: Yes (Life-Threatening)
  Sender: FDA-Public Use
  Company Number: PHHY2013ES124948

PATIENT
  Age: 73 Year
  Sex: Male

DRUGS (13)
  1. TASIGNA [Suspect]
     Indication: CHRONIC MYELOID LEUKAEMIA
     Dosage: 400 MG, BID
     Route: 048
     Dates: start: 20120924, end: 20131023
  2. AZARGA [Concomitant]
  3. HIDROSALURETIL [Concomitant]
  4. LORAZEPAM [Concomitant]
  5. LOSARTAN [Concomitant]
  6. OMEPRAZOLE [Concomitant]
  7. PERMIXON [Concomitant]
  8. SIMVASTATIN [Concomitant]
  9. ACETYLSALICYLIC ACID [Concomitant]
  10. FERROGRADUMET [Concomitant]
  11. SERETIDE [Concomitant]
  12. SPIRIVA [Concomitant]
  13. ANTIHYPERTENSIVES [Concomitant]

REACTIONS (3)
  - Angina unstable [Unknown]
  - Ischaemia [Unknown]
  - Pyrexia [Unknown]
